FAERS Safety Report 5155665-6 (Version None)
Quarter: 2006Q4

REPORT INFORMATION
  Report Type: 
  Country: None (occurrence: None)
  Receive Date: 20061114
  Receipt Date: 20061103
  Transmission Date: 20070319
  Serious: Yes (Death, Other)
  Sender: FDA-Public Use
  Company Number: GXKR2006US07080

PATIENT
  Age: 84 Year
  Sex: Female

DRUGS (2)
  1. VERAPAMIL [Suspect]
     Dosage: 480 MG, ORAL
     Route: 048
  2. LISINOPRIL [Concomitant]

REACTIONS (1)
  - ACCIDENTAL OVERDOSE [None]
